FAERS Safety Report 8814685 (Version 2)
Quarter: 2013Q1

REPORT INFORMATION
  Report Type: Spontaneous
  Country: GB (occurrence: None)
  Receive Date: 20120926
  Receipt Date: 20121022
  Transmission Date: 20140127
  Serious: Yes (Other)
  Sender: FDA-Public Use
  Company Number: 1418437

PATIENT
  Age: 7 Year
  Sex: Male
  Weight: 7.89 kg

DRUGS (2)
  1. CEFUROXIME SODIUM [Suspect]
     Indication: PRIMARY CILIARY DYSKINESIA
     Route: 042
     Dates: start: 20120821, end: 20120827
  2. (AUGMENTIN-DUO) [Concomitant]

REACTIONS (6)
  - Abdominal pain upper [None]
  - Abdominal pain [None]
  - Pyrexia [None]
  - Aspartate aminotransferase increased [None]
  - C-reactive protein increased [None]
  - Nausea [None]
